FAERS Safety Report 5429548-8 (Version None)
Quarter: 2007Q3

REPORT INFORMATION
  Report Type: 
  Country: None (occurrence: None)
  Receive Date: 20070824
  Receipt Date: 20070809
  Transmission Date: 20080115
  Serious: Yes (Other)
  Sender: FDA-Public Use
  Company Number: 2007EU001684

PATIENT
  Age: 37 Year
  Sex: Female

DRUGS (3)
  1. TACROLIMUS [Suspect]
     Indication: RENAL TRANSPLANT
  2. MYCOPHENOLATE MOFETIL [Suspect]
     Indication: RENAL TRANSPLANT
     Dosage: 2 G, UID/QD,; 1.5 G, UID/QD,; 0.5 MG, QID/QD,
  3. CORTICOSTEROIDS() [Suspect]
     Indication: RENAL TRANSPLANT

REACTIONS (4)
  - GRAFT DYSFUNCTION [None]
  - IMMUNE RECONSTITUTION SYNDROME [None]
  - PLASMAPHERESIS [None]
  - POLYOMAVIRUS-ASSOCIATED NEPHROPATHY [None]
